FAERS Safety Report 5196699-5 (Version None)
Quarter: 2006Q4

REPORT INFORMATION
  Report Type: 
  Country: None (occurrence: None)
  Receive Date: 20061227
  Receipt Date: 20061213
  Transmission Date: 20070319
  Serious: Yes (Other)
  Sender: FDA-Public Use
  Company Number: 2006144456

PATIENT
  Age: 53 Year
  Sex: Female
  Weight: 58.9676 kg

DRUGS (3)
  1. LYRICA [Suspect]
     Indication: PAIN
     Dosage: 50 MG (25 MG, 2 IN 1 D)
     Dates: start: 20060905, end: 20060901
  2. SKELAXIN [Concomitant]
  3. LORTAN (HYDROCODONE BITARTRATE, PARACETAMOL) [Concomitant]

REACTIONS (2)
  - DRUG INEFFECTIVE [None]
  - INTERVERTEBRAL DISC OPERATION [None]
